FAERS Safety Report 14943365 (Version 1)
Quarter: 2018Q2

REPORT INFORMATION
  Report Type: Spontaneous
  Country: US (occurrence: US)
  Receive Date: 20180528
  Receipt Date: 20180528
  Transmission Date: 20180711
  Serious: Yes (Hospitalization, Other)
  Sender: FDA-Public Use
  Company Number: US-ALLERGAN-1827521US

PATIENT
  Age: 76 Year
  Sex: Female
  Weight: 99.77 kg

DRUGS (12)
  1. PROPOFOL. [Interacting]
     Active Substance: PROPOFOL
     Dosage: UNK
     Route: 042
     Dates: start: 20160822
  2. GABAPENTIN. [Concomitant]
     Active Substance: GABAPENTIN
     Indication: STENOSIS
  3. LISINOPRIL. [Concomitant]
     Active Substance: LISINOPRIL
     Route: 048
  4. NAMENDA [Suspect]
     Active Substance: MEMANTINE HYDROCHLORIDE
     Indication: MEMORY IMPAIRMENT
     Dosage: 10 MG, BID
     Route: 048
     Dates: start: 2015, end: 201608
  5. GABAPENTIN. [Concomitant]
     Active Substance: GABAPENTIN
     Indication: NECK PAIN
     Route: 048
  6. PROPOFOL. [Interacting]
     Active Substance: PROPOFOL
     Indication: ANAESTHESIA
     Dosage: UNK
     Route: 042
     Dates: start: 20160808
  7. ASPIRIN. [Concomitant]
     Active Substance: ASPIRIN
     Route: 048
  8. ARICEPT [Concomitant]
     Active Substance: DONEPEZIL HYDROCHLORIDE
     Route: 048
  9. HYDROCODONE [Concomitant]
     Active Substance: HYDROCODONE
     Route: 048
  10. XARELTO [Concomitant]
     Active Substance: RIVAROXABAN
     Route: 048
  11. FLUOXETINE [Concomitant]
     Active Substance: FLUOXETINE HYDROCHLORIDE
     Route: 048
  12. METHIMAZOLE. [Concomitant]
     Active Substance: METHIMAZOLE
     Route: 048

REACTIONS (9)
  - Seizure [Recovered/Resolved]
  - Status epilepticus [Unknown]
  - Seizure [Not Recovered/Not Resolved]
  - Drug interaction [Unknown]
  - Incoherent [Recovered/Resolved]
  - Bedridden [Not Recovered/Not Resolved]
  - Tremor [Not Recovered/Not Resolved]
  - Tremor [Not Recovered/Not Resolved]
  - Walking disability [Not Recovered/Not Resolved]

NARRATIVE: CASE EVENT DATE: 20160808
